FAERS Safety Report 16538669 (Version 2)
Quarter: 2019Q3

REPORT INFORMATION
  Report Type: Spontaneous
  Country: US (occurrence: US)
  Receive Date: 20190708
  Receipt Date: 20190910
  Transmission Date: 20191004
  Serious: Yes (Hospitalization)
  Sender: FDA-Public Use
  Company Number: US-BIOGEN-2019BI00758553

PATIENT
  Sex: Female

DRUGS (1)
  1. AVONEX [Suspect]
     Active Substance: INTERFERON BETA-1A
     Indication: MULTIPLE SCLEROSIS
     Route: 065
     Dates: start: 20070803, end: 20071116

REACTIONS (4)
  - Cardiomegaly [Unknown]
  - Hypersomnia [Recovered/Resolved]
  - Feeding disorder [Recovered/Resolved]
  - Influenza like illness [Not Recovered/Not Resolved]
